FAERS Safety Report 4770887-1 (Version None)
Quarter: 2005Q3

REPORT INFORMATION
  Report Type: 
  Country: None (occurrence: None)
  Receive Date: 20050915
  Receipt Date: 20050825
  Transmission Date: 20060218
  Serious: Yes (Death)
  Sender: FDA-Public Use
  Company Number: JP-ROCHE-415416

PATIENT
  Age: 60 Year
  Sex: Male

DRUGS (9)
  1. PANALDINE [Suspect]
     Indication: THROMBOSIS PROPHYLAXIS
     Dosage: DURATION REPORTED AS 5 WEEKS AND 4 DAYS SECONDARY INDICATION OF STENT PLACEMENT AND ACUTE MYOCARDIA+
     Route: 048
     Dates: start: 20050627, end: 20050804
  2. ASPIRIN [Concomitant]
     Indication: THROMBOSIS PROPHYLAXIS
     Route: 048
     Dates: start: 20050627, end: 20050811
  3. UNSPECIFIED DRUG [Concomitant]
     Dosage: DRUG NAME WAS REPORTED AS NOR-ADRENALINE
     Route: 041
     Dates: start: 20050627, end: 20050811
  4. DOBUTREX [Concomitant]
     Dates: start: 20050627
  5. SIGMART [Concomitant]
     Dates: start: 20050627
  6. HANP [Concomitant]
     Route: 041
     Dates: start: 20050706, end: 20050811
  7. TARGOCID [Concomitant]
     Route: 041
     Dates: start: 20050730, end: 20050811
  8. HABEKACIN [Concomitant]
     Route: 041
  9. BLOOD, PACKED RED CELLS [Concomitant]
     Route: 042
     Dates: start: 20050628, end: 20050810

REACTIONS (3)
  - CARDIAC FAILURE [None]
  - HEPATIC FUNCTION ABNORMAL [None]
  - HEPATITIS CHOLESTATIC [None]
